FAERS Safety Report 25001765 (Version 3)
Quarter: 2025Q3

REPORT INFORMATION
  Report Type: Spontaneous
  Country: EU (occurrence: EU)
  Receive Date: 20250224
  Receipt Date: 20250802
  Transmission Date: 20251021
  Serious: Yes (Other)
  Sender: ALEXION PHARMACEUTICALS
  Company Number: EU-SANDOZ-SDZ2025DE008220

PATIENT
  Sex: Female

DRUGS (2)
  1. FULVESTRANT [Suspect]
     Active Substance: FULVESTRANT
     Indication: Breast cancer
     Dates: start: 20240125, end: 20250206
  2. FULVESTRANT [Suspect]
     Active Substance: FULVESTRANT

REACTIONS (5)
  - Hypertension [Unknown]
  - Flushing [Recovering/Resolving]
  - Tachycardia [Unknown]
  - Cough [Unknown]
  - Erythema [Unknown]
